FAERS Safety Report 5399090-1 (Version None)
Quarter: 2007Q3

REPORT INFORMATION
  Report Type: 
  Country: None (occurrence: None)
  Receive Date: 20070727
  Receipt Date: 20061103
  Transmission Date: 20080115
  Serious: No
  Sender: FDA-Public Use
  Company Number: A0626167A

PATIENT
  Age: 51 Year
  Sex: Female

DRUGS (4)
  1. LOTRONEX [Suspect]
     Indication: IRRITABLE BOWEL SYNDROME
     Dosage: .5MG TWICE PER DAY
     Route: 048
  2. HYDROCODONE BITARTRATE [Concomitant]
  3. PROVIGIL [Concomitant]
  4. EFFEXOR [Concomitant]

REACTIONS (4)
  - DIARRHOEA [None]
  - PAIN [None]
  - VISION BLURRED [None]
  - VOMITING [None]
